FAERS Safety Report 6249230-7 (Version None)
Quarter: 2009Q2

REPORT INFORMATION
  Report Type: 
  Country: None (occurrence: None)
  Receive Date: 20090629
  Receipt Date: 20090617
  Transmission Date: 20091009
  Serious: Yes (Other)
  Sender: FDA-Public Use
  Company Number: US-PFIZER INC-2009230392

PATIENT
  Age: 57 Year
  Sex: Male
  Weight: 99.8 kg

DRUGS (1)
  1. CELEBREX [Suspect]
     Indication: JOINT SWELLING
     Dosage: 200 MG, 2X/DAY
     Route: 048
     Dates: start: 20090601, end: 20090615

REACTIONS (4)
  - DIZZINESS [None]
  - DRUG INEFFECTIVE [None]
  - FATIGUE [None]
  - GAIT DISTURBANCE [None]
